FAERS Safety Report 6321638-0 (Version None)
Quarter: 2009Q3

REPORT INFORMATION
  Report Type: 
  Country: None (occurrence: None)
  Receive Date: 20090821
  Receipt Date: 20090821
  Transmission Date: 20100115
  Serious: Yes (Death, Hospitalization, Disabling)
  Sender: FDA-Public Use
  Company Number: None

PATIENT
  Age: 57 Year
  Sex: Male
  Weight: 79.3795 kg

DRUGS (3)
  1. HYDROMORPHONE HCL [Suspect]
     Indication: DRUG ABUSER
     Dates: start: 20050901, end: 20090228
  2. PHENYTOIN SODIUM CAP [Suspect]
     Indication: CONVULSION
     Dates: start: 20081001
  3. PHENYTOIN SODIUM CAP [Suspect]
     Indication: CONVULSION
     Dates: start: 20081031

REACTIONS (8)
  - CONVULSION [None]
  - DELUSION [None]
  - DISEASE RECURRENCE [None]
  - HALLUCINATION [None]
  - HEPATIC NEOPLASM MALIGNANT [None]
  - HEPATITIS C [None]
  - MOOD SWINGS [None]
  - RASH [None]
